FAERS Safety Report 4384523-X (Version None)
Quarter: 2004Q2

REPORT INFORMATION
  Report Type: 
  Country: None (occurrence: None)
  Receive Date: 20040610
  Receipt Date: 20040219
  Transmission Date: 20050107
  Serious: Yes (Hospitalization)
  Sender: FDA-Public Use
  Company Number: F03200400009

PATIENT
  Age: 50 Year
  Sex: Male

DRUGS (20)
  1. ELOXATIN [Suspect]
     Indication: COLON CANCER METASTATIC
     Dosage: ^162 2/1 CYCLE^ - INTRAVENOUS NOS
     Route: 042
     Dates: start: 20040114, end: 20040114
  2. FLUOROURACIL [Suspect]
     Indication: COLON CANCER METASTATIC
     Dosage: ^1140 MG 2/1 CYCLE^ - INTRAVENOUS NOS
     Route: 042
     Dates: start: 20040115, end: 20040116
  3. LEUCOVORIN CALCIUM [Suspect]
     Indication: COLON CANCER METASTATIC
     Dosage: ^380 2/1 CYCLE^ - INTRAVENOUS NOS
     Route: 042
     Dates: start: 20040115, end: 20040115
  4. CETUXIMAB - SOLUTION [Suspect]
     Indication: COLON CANCER METASTATIC
     Dosage: 475 MG 1/WEEK - INTRAVENOUS NOS
     Route: 042
     Dates: start: 20040121, end: 20040121
  5. DIPHENHYDRAMINE HCL [Concomitant]
  6. GRANISETRON [Concomitant]
  7. DXAMETHASONE [Concomitant]
  8. METOCLOPRAMIDE [Concomitant]
  9. SERTRALINE HYDROCHLORIDE [Concomitant]
  10. DRONABINOL [Concomitant]
  11. OXYCODONE [Concomitant]
  12. LORAZEPAM [Concomitant]
  13. ZOLPIDEM [Concomitant]
  14. ACETYLCYSTEINE [Concomitant]
  15. BACLOFEN [Concomitant]
  16. GUAIFENESIN [Concomitant]
  17. PROCHLORPERAZINE [Concomitant]
  18. WARFARIN SODIUM [Concomitant]
  19. SILDENAFIL [Concomitant]
  20. LOPERAMIDE HCL [Concomitant]

REACTIONS (2)
  - NAUSEA [None]
  - VOMITING [None]
